FAERS Safety Report 22383411 (Version 1)
Quarter: 2023Q2

REPORT INFORMATION
  Report Type: Report from Study
  Country: IN (occurrence: IN)
  Receive Date: 20230530
  Receipt Date: 20230530
  Transmission Date: 20230722
  Serious: Yes (Hospitalization)
  Sender: FDA-Public Use
  Company Number: IN-002147023-NVSC2022IN039807

PATIENT

DRUGS (3)
  1. RUXOLITINIB [Suspect]
     Active Substance: RUXOLITINIB
     Indication: Primary myelofibrosis
     Dosage: 5 MG, BID
     Route: 065
     Dates: start: 20200821, end: 20220212
  2. RUXOLITINIB [Suspect]
     Active Substance: RUXOLITINIB
     Dosage: 5 MG, QD
     Route: 065
     Dates: start: 20220213
  3. RUXOLITINIB [Suspect]
     Active Substance: RUXOLITINIB
     Dosage: 10 MG, BID
     Route: 048
     Dates: start: 20230504

REACTIONS (3)
  - Anaemia [Not Recovered/Not Resolved]
  - Inappropriate schedule of product administration [Unknown]
  - Asthenia [Unknown]

NARRATIVE: CASE EVENT DATE: 20230503
